FAERS Safety Report 18585700 (Version 1)
Quarter: 2020Q4

REPORT INFORMATION
  Report Type: Spontaneous
  Country: US (occurrence: US)
  Receive Date: 20201207
  Receipt Date: 20201207
  Transmission Date: 20210114
  Serious: No
  Sender: FDA-Public Use
  Company Number: US-TEVA-2020-US-1855703

PATIENT
  Age: 75 Year
  Sex: Female

DRUGS (7)
  1. DULERA [Concomitant]
     Active Substance: FORMOTEROL FUMARATE DIHYDRATE\MOMETASONE FUROATE
     Dosage: ONCE OR TWICE A DAY DEPENDING ON HER LUNGS
     Route: 065
  2. ALBUTEROL SULFATE HFA [Suspect]
     Active Substance: ALBUTEROL SULFATE
  3. DULERA [Concomitant]
     Active Substance: FORMOTEROL FUMARATE DIHYDRATE\MOMETASONE FUROATE
     Dosage: ONCE OR TWICE A DAY DEPENDING ON HER LUNGS
     Route: 065
     Dates: start: 20201124
  4. PROAIR RESPICLICK [Suspect]
     Active Substance: ALBUTEROL SULFATE
  5. PROAIR RESPICLICK [Suspect]
     Active Substance: ALBUTEROL SULFATE
     Indication: PNEUMONIA
     Dosage: EVERY 6 HOURS
     Route: 065
     Dates: start: 20201123, end: 20201124
  6. ALBUTEROL SULFATE HFA [Suspect]
     Active Substance: ALBUTEROL SULFATE
     Route: 065
  7. FAMOTIDINE. [Concomitant]
     Active Substance: FAMOTIDINE
     Route: 065

REACTIONS (7)
  - Reaction to excipient [Unknown]
  - Feeling abnormal [Unknown]
  - Movement disorder [Unknown]
  - Product formulation issue [Unknown]
  - Abdominal discomfort [Recovered/Resolved]
  - Therapeutic product effect incomplete [Unknown]
  - Off label use [Unknown]

NARRATIVE: CASE EVENT DATE: 2020
